FAERS Safety Report 7636911-3 (Version None)
Quarter: 2011Q3

REPORT INFORMATION
  Report Type: 
  Country: None (occurrence: None)
  Receive Date: 20110726
  Receipt Date: 20110719
  Transmission Date: 20111222
  Serious: Yes (Disabling, Other)
  Sender: FDA-Public Use
  Company Number: DE-BAYER-2011-062744

PATIENT
  Age: 63 Year
  Sex: Female
  Weight: 168 kg

DRUGS (1)
  1. NEXAVAR [Suspect]
     Indication: HEPATIC NEOPLASM MALIGNANT
     Dosage: 400 MG, BID
     Route: 048
     Dates: start: 20100401, end: 20100601

REACTIONS (3)
  - BRAIN MASS [None]
  - MYOCLONUS [None]
  - CONFUSIONAL STATE [None]
